FAERS Safety Report 4729076-9 (Version None)
Quarter: 2005Q3

REPORT INFORMATION
  Report Type: 
  Country: None (occurrence: None)
  Receive Date: 20050729
  Receipt Date: 20050315
  Transmission Date: 20060218
  Serious: No
  Sender: FDA-Public Use
  Company Number: US-GLAXOSMITHKLINE-A0549895A

PATIENT
  Age: 35 Year
  Sex: Female

DRUGS (4)
  1. IMITREX [Suspect]
     Indication: HEADACHE
     Dosage: 100MG PER DAY
     Route: 048
     Dates: start: 20050315, end: 20050315
  2. SYNTHROID [Concomitant]
  3. WELLBUTRIN XL [Concomitant]
  4. LORATADINE [Concomitant]

REACTIONS (11)
  - BLOOD PRESSURE INCREASED [None]
  - CHEST PAIN [None]
  - DYSPHAGIA [None]
  - HEADACHE [None]
  - HEART RATE INCREASED [None]
  - MUSCULOSKELETAL STIFFNESS [None]
  - NECK PAIN [None]
  - PARAESTHESIA [None]
  - SOMNOLENCE [None]
  - SPEECH DISORDER [None]
  - THROAT TIGHTNESS [None]
